FAERS Safety Report 5505276-5 (Version None)
Quarter: 2007Q4

REPORT INFORMATION
  Report Type: 
  Country: None (occurrence: None)
  Receive Date: 20071102
  Receipt Date: 20071022
  Transmission Date: 20080405
  Serious: Yes (Other)
  Sender: FDA-Public Use
  Company Number: US-JNJFOC-20071006108

PATIENT
  Sex: Female
  Weight: 72.58 kg

DRUGS (3)
  1. LEVAQUIN [Suspect]
     Indication: DIVERTICULITIS
     Route: 048
  2. ZOCOR [Concomitant]
     Indication: BLOOD CHOLESTEROL
     Route: 065
  3. LIBERAX [Concomitant]
     Indication: GASTROINTESTINAL DISORDER
     Route: 065

REACTIONS (5)
  - COLITIS [None]
  - COLONIC POLYP [None]
  - FOOD ALLERGY [None]
  - HAEMATOCHEZIA [None]
  - TENDON RUPTURE [None]
